FAERS Safety Report 23114884 (Version 1)
Quarter: 2023Q4

REPORT INFORMATION
  Report Type: Spontaneous
  Country: US (occurrence: US)
  Receive Date: 20231027
  Receipt Date: 20231027
  Transmission Date: 20240109
  Serious: Yes (Hospitalization)
  Sender: FDA-Public Use
  Company Number: US-MYLANLABS-2023M1112283

PATIENT
  Sex: Male

DRUGS (6)
  1. URSODIOL [Suspect]
     Active Substance: URSODIOL
     Indication: Jaundice cholestatic
     Dosage: 20 MILLIGRAM/KILOGRAM, QD, RECEIVED IN DIVIDED DOSES
     Route: 065
  2. URSODIOL [Suspect]
     Active Substance: URSODIOL
     Indication: Glucose-6-phosphate dehydrogenase deficiency
  3. VITAMIN A [Suspect]
     Active Substance: VITAMIN A
     Indication: Supplementation therapy
     Dosage: UNK
     Route: 065
  4. VITAMIN E [Suspect]
     Active Substance: .ALPHA.-TOCOPHEROL
     Indication: Supplementation therapy
     Dosage: UNK
     Route: 065
  5. VITAMIN D [Suspect]
     Active Substance: VITAMIN D NOS
     Indication: Supplementation therapy
     Dosage: UNK
     Route: 065
  6. VITAMIN K [Concomitant]
     Active Substance: PHYTONADIONE
     Indication: Supplementation therapy
     Dosage: UNK
     Route: 042

REACTIONS (2)
  - Drug ineffective [Unknown]
  - Off label use [Unknown]
